FAERS Safety Report 13498939 (Version 1)
Quarter: 2017Q2

REPORT INFORMATION
  Report Type: Spontaneous
  Country: US (occurrence: US)
  Receive Date: 20170430
  Receipt Date: 20170430
  Transmission Date: 20170830
  Serious: No
  Sender: FDA-Public Use
  Company Number: None

PATIENT
  Age: 22 Year
  Sex: Male
  Weight: 87.75 kg

DRUGS (7)
  1. TYLENOL [Concomitant]
     Active Substance: ACETAMINOPHEN
  2. VITAMIN B6 [Concomitant]
     Active Substance: PYRIDOXINE HYDROCHLORIDE
  3. VITAMIN C [Concomitant]
     Active Substance: ASCORBIC ACID
  4. OSELTAMIVIR 75 MG CAP ALV [Suspect]
     Active Substance: OSELTAMIVIR
     Indication: INFLUENZA
     Dosage: ?          QUANTITY:10 CAPSULE(S); TWICE A DAY ORAL?
     Route: 048
     Dates: start: 20170424, end: 20170429
  5. VITAMIN B12 [Concomitant]
     Active Substance: CYANOCOBALAMIN
  6. GREEN TEA EXTRACT [Concomitant]
  7. ADVIL [Concomitant]
     Active Substance: IBUPROFEN

REACTIONS (6)
  - Body temperature decreased [None]
  - Back pain [None]
  - Pain in extremity [None]
  - Spinal pain [None]
  - Thinking abnormal [None]
  - Gait disturbance [None]

NARRATIVE: CASE EVENT DATE: 20170429
